FAERS Safety Report 7182766-3 (Version None)
Quarter: 2010Q4

REPORT INFORMATION
  Report Type: 
  Country: None (occurrence: None)
  Receive Date: 20101221
  Receipt Date: 20100610
  Transmission Date: 20110411
  Serious: No
  Sender: FDA-Public Use
  Company Number: US-AMGEN-TCS407266

PATIENT

DRUGS (4)
  1. ENBREL [Suspect]
     Indication: RHEUMATOID ARTHRITIS
     Dosage: 50 MG, QWK
     Route: 058
     Dates: start: 20071101
  2. PRAVASTATIN [Concomitant]
  3. MULTI-VITAMINS [Concomitant]
  4. CALCIUM [Concomitant]

REACTIONS (11)
  - ERYTHEMA [None]
  - INJECTION SITE ERYTHEMA [None]
  - INJECTION SITE INDURATION [None]
  - INJECTION SITE SWELLING [None]
  - NASOPHARYNGITIS [None]
  - PAIN OF SKIN [None]
  - POST PROCEDURAL COMPLICATION [None]
  - SKIN BURNING SENSATION [None]
  - SKIN INFECTION [None]
  - UPPER RESPIRATORY TRACT INFECTION [None]
  - URTICARIA [None]
